FAERS Safety Report 11795846 (Version 2)
Quarter: 2018Q1

REPORT INFORMATION
  Report Type: Report from Study
  Country: US (occurrence: US)
  Receive Date: 20151203
  Receipt Date: 20180317
  Transmission Date: 20180508
  Serious: Yes (Hospitalization, Other)
  Sender: FDA-Public Use
  Company Number: US-ROCHE-1671941

PATIENT
  Sex: Female

DRUGS (5)
  1. NUTROPIN AQ [Suspect]
     Active Substance: SOMATROPIN
     Indication: HYPOPITUITARISM
     Dosage: 1.2 MG/INJECTION DAILY AT BEDTIME (NUSPIN 10)
     Route: 058
  2. NUTROPIN AQ [Suspect]
     Active Substance: SOMATROPIN
     Indication: BODY HEIGHT BELOW NORMAL
     Dosage: 1.4 MG/INJECTION (7 INJECTIONS/WEEK) (NUSPIN 20)
     Route: 058
  3. NEOMYCIN SULFATE. [Concomitant]
     Active Substance: NEOMYCIN SULFATE
     Dosage: 0.5 TABLET TWICE DAILY
     Route: 048
  4. NYSTATIN. [Concomitant]
     Active Substance: NYSTATIN
     Dosage: 100000 UNIT/ML MOUTH/THROAT SUSPENSION
     Route: 048
  5. METRONIDAZOLE. [Concomitant]
     Active Substance: METRONIDAZOLE
     Dosage: 1 TABLET TWICE DAILY
     Route: 048

REACTIONS (2)
  - Anaemia [Unknown]
  - Failure to thrive [Unknown]
